FAERS Safety Report 9632776 (Version 1)
Quarter: 2013Q4

REPORT INFORMATION
  Report Type: Report from Study
  Country: US (occurrence: US)
  Receive Date: 20131018
  Receipt Date: 20131018
  Transmission Date: 20140711
  Serious: Yes (Hospitalization, Other)
  Sender: FDA-Public Use
  Company Number: US-ABBVIE-13P-163-1156499-00

PATIENT
  Age: 36 Year
  Sex: Male
  Weight: 51.3 kg

DRUGS (6)
  1. HUMIRA [Suspect]
     Indication: CROHN^S DISEASE
     Dosage: 4 INJECTIONS 1 DAY
     Route: 058
     Dates: start: 2010, end: 2010
  2. HUMIRA [Suspect]
     Dosage: 2 INJECTIONS 2 WEEKS AFTER LOADING DOSE
     Route: 058
     Dates: start: 2010, end: 2010
  3. HUMIRA [Suspect]
     Route: 058
     Dates: start: 2010, end: 201307
  4. MULTIVITAMIN [Concomitant]
     Indication: VITAMIN SUPPLEMENTATION
     Route: 048
  5. IMURAN [Concomitant]
     Indication: CROHN^S DISEASE
     Route: 048
     Dates: start: 201310
  6. PREDNISONE [Concomitant]
     Indication: CROHN^S DISEASE
     Route: 048
     Dates: start: 201310

REACTIONS (7)
  - Anal fistula [Recovered/Resolved]
  - Crohn^s disease [Recovered/Resolved]
  - Crohn^s disease [Recovered/Resolved]
  - Joint swelling [Recovered/Resolved]
  - Crohn^s disease [Recovered/Resolved]
  - Muscle spasms [Recovered/Resolved]
  - Dehydration [Recovered/Resolved]
